FAERS Safety Report 18455573 (Version 2)
Quarter: 2020Q4

REPORT INFORMATION
  Report Type: Spontaneous
  Country: US (occurrence: US)
  Receive Date: 20201102
  Receipt Date: 20201105
  Transmission Date: 20210114
  Serious: Yes (Hospitalization, Other)
  Sender: FDA-Public Use
  Company Number: US-BIOGEN-2020BI00939899

PATIENT
  Sex: Female

DRUGS (2)
  1. TECFIDERA [Suspect]
     Active Substance: DIMETHYL FUMARATE
     Route: 048
  2. TECFIDERA [Suspect]
     Active Substance: DIMETHYL FUMARATE
     Indication: MULTIPLE SCLEROSIS
     Route: 065
     Dates: start: 20140618, end: 20180426

REACTIONS (8)
  - Gait inability [Not Recovered/Not Resolved]
  - Influenza [Unknown]
  - Severe acute respiratory syndrome [Unknown]
  - Pain in extremity [Unknown]
  - Pneumonia [Unknown]
  - Mobility decreased [Unknown]
  - Cardiac failure [Unknown]
  - Hypertension [Unknown]
